FAERS Safety Report 24878058 (Version 1)
Quarter: 2025Q1

REPORT INFORMATION
  Report Type: Spontaneous
  Country: US (occurrence: None)
  Receive Date: 20250122
  Receipt Date: 20250122
  Transmission Date: 20250409
  Serious: Yes (Hospitalization)
  Sender: FDA-CTU
  Company Number: None

PATIENT
  Age: 45 Year
  Sex: Male

DRUGS (9)
  1. SOFOSBUVIR\VELPATASVIR [Suspect]
     Active Substance: SOFOSBUVIR\VELPATASVIR
     Indication: Hepatitis C
     Dosage: OTHER QUANTITY : 1 DOSAGE;?FREQUENCY : DAILY;?
     Route: 048
     Dates: start: 20241203
  2. LEVETIRACETAM [Concomitant]
     Active Substance: LEVETIRACETAM
  3. clonidine 0, 1 [Concomitant]
  4. HALDOL [Concomitant]
     Active Substance: HALOPERIDOL
  5. lactulase [Concomitant]
  6. PHENOBARBITAL [Concomitant]
     Active Substance: PHENOBARBITAL
  7. FOLIC ACID [Concomitant]
     Active Substance: FOLIC ACID
  8. METOPROLOL SUCCINATE [Concomitant]
     Active Substance: METOPROLOL SUCCINATE
  9. VITAMIN B12 [Concomitant]
     Active Substance: CYANOCOBALAMIN

REACTIONS (1)
  - Seizure [None]

NARRATIVE: CASE EVENT DATE: 20250111
